FAERS Safety Report 7773165-1 (Version None)
Quarter: 2011Q3

REPORT INFORMATION
  Report Type: 
  Country: None (occurrence: None)
  Receive Date: 20110922
  Receipt Date: 20101229
  Transmission Date: 20111222
  Serious: No
  Sender: FDA-Public Use
  Company Number: US-ASTRAZENECA-2010SE61281

PATIENT
  Age: 78 Year
  Sex: Female
  Weight: 45.4 kg

DRUGS (1)
  1. SEROQUEL XR [Suspect]
     Indication: DEMENTIA
     Route: 048

REACTIONS (2)
  - AGITATION [None]
  - WRONG TECHNIQUE IN DRUG USAGE PROCESS [None]
